FAERS Safety Report 12511513 (Version 1)
Quarter: 2016Q2

REPORT INFORMATION
  Report Type: Spontaneous
  Country: IN (occurrence: IN)
  Receive Date: 20160629
  Receipt Date: 20160629
  Transmission Date: 20160815
  Serious: Yes (Other)
  Sender: FDA-Public Use
  Company Number: PHHY2016IN086167

PATIENT
  Age: 27 Year
  Sex: Female

DRUGS (7)
  1. CLOZAPINE. [Suspect]
     Active Substance: CLOZAPINE
     Indication: SCHIZOPHRENIA
     Dosage: UNK
     Route: 065
  2. FOLIC ACID. [Suspect]
     Active Substance: FOLIC ACID
     Indication: INFERTILITY
     Route: 065
  3. HUMAN CHORIONIC GONADOTROPIN [Suspect]
     Active Substance: GONADOTROPHIN, CHORIONIC
     Indication: INFERTILITY
     Dosage: 5000 IU, UNK
     Route: 065
  4. PREGNENOLONE [Suspect]
     Active Substance: PREGNENOLONE
     Indication: INFERTILITY
     Dosage: 10 MG, UNK
     Route: 065
  5. CLOZAPINE. [Suspect]
     Active Substance: CLOZAPINE
     Dosage: 200 MG, QD
  6. GONADOTROPHIN HUMAN MENOPAUSAL [Suspect]
     Active Substance: GONADOTROPHIN, CHORIONIC
     Indication: INFERTILITY
     Dosage: 150 MG, UNK
     Route: 065
  7. CLOZAPINE. [Suspect]
     Active Substance: CLOZAPINE
     Dosage: INCREASED UP TO 400 MG, QD
     Route: 065

REACTIONS (7)
  - Salivary hypersecretion [Unknown]
  - Caesarean section [None]
  - Multiple pregnancy [None]
  - Prolonged rupture of membranes [None]
  - Sedation [Unknown]
  - Maternal exposure during pregnancy [Unknown]
  - Schizophrenia [Unknown]
